FAERS Safety Report 7296251-1 (Version None)
Quarter: 2011Q1

REPORT INFORMATION
  Report Type: 
  Country: None (occurrence: None)
  Receive Date: 20110216
  Receipt Date: 20110209
  Transmission Date: 20110831
  Serious: Yes (Hospitalization)
  Sender: FDA-Public Use
  Company Number: IE-AMGEN-IRLSP2011007829

PATIENT
  Age: 87 Year
  Sex: Male

DRUGS (8)
  1. LASIX [Concomitant]
  2. CLOPIDOGREL [Concomitant]
  3. ASPIRIN [Concomitant]
  4. METHASONE                          /00016001/ [Concomitant]
  5. CARDICOR [Concomitant]
  6. ELTROXIN [Concomitant]
  7. ARANESP [Suspect]
     Indication: RENAL FAILURE CHRONIC
     Dosage: 20 A?G, QWK
     Route: 058
     Dates: start: 20110127
  8. GALFER [Concomitant]

REACTIONS (1)
  - MALAISE [None]
